FAERS Safety Report 7689587-3 (Version None)
Quarter: 2011Q3

REPORT INFORMATION
  Report Type: 
  Country: None (occurrence: None)
  Receive Date: 20110817
  Receipt Date: 20110809
  Transmission Date: 20111222
  Serious: Yes (Other)
  Sender: FDA-Public Use
  Company Number: US-ASTRAZENECA-2011SE47680

PATIENT
  Age: 23 Year
  Sex: Male

DRUGS (1)
  1. PROPOFOL [Suspect]
     Dosage: 80 UG/KG/MIN (4.8 MG/KG/H)
     Route: 042

REACTIONS (1)
  - PROPOFOL INFUSION SYNDROME [None]
